FAERS Safety Report 22517970 (Version 2)
Quarter: 2025Q4

REPORT INFORMATION
  Report Type: Report from Study
  Country: US (occurrence: US)
  Receive Date: 20230605
  Receipt Date: 20251107
  Transmission Date: 20260119
  Serious: No
  Sender: ABBVIE
  Company Number: US-ABBVIE-4756966

PATIENT
  Age: 26 Year
  Sex: Male

DRUGS (1)
  1. SKYRIZI [Suspect]
     Active Substance: RISANKIZUMAB-RZAA
     Indication: Psoriasis
     Route: 058
     Dates: start: 20220916

REACTIONS (2)
  - Psoriasis [Recovering/Resolving]
  - Psoriasis [Unknown]

NARRATIVE: CASE EVENT DATE: 20230101
